FAERS Safety Report 26066719 (Version 3)
Quarter: 2025Q4

REPORT INFORMATION
  Report Type: Spontaneous
  Country: UY (occurrence: UY)
  Receive Date: 20251119
  Receipt Date: 20251224
  Transmission Date: 20260117
  Serious: No
  Sender: PFIZER
  Company Number: UY-PFIZER INC-202500208372

PATIENT
  Age: 9 Year
  Sex: Female

DRUGS (1)
  1. GENOTROPIN [Suspect]
     Active Substance: SOMATROPIN
     Indication: Short stature
     Dosage: 0.8 MG, DAILY
     Dates: start: 20251007, end: 20251010

REACTIONS (2)
  - Intentional product misuse [Unknown]
  - Injection site pain [Unknown]

NARRATIVE: CASE EVENT DATE: 20251010
